FAERS Safety Report 21638534 (Version 2)
Quarter: 2023Q1

REPORT INFORMATION
  Report Type: Spontaneous
  Country: SE (occurrence: SE)
  Receive Date: 20221124
  Receipt Date: 20230103
  Transmission Date: 20230417
  Serious: Yes (Hospitalization, Other)
  Sender: FDA-Public Use
  Company Number: None

PATIENT
  Age: 69 Year
  Sex: Male

DRUGS (8)
  1. NIVOLUMAB [Suspect]
     Active Substance: NIVOLUMAB
     Indication: Bladder cancer
     Dates: start: 20220929, end: 20220929
  2. HEPARIN SODIUM [Concomitant]
     Active Substance: HEPARIN SODIUM
     Indication: Product used for unknown indication
     Dates: start: 20221026, end: 20221029
  3. SOLVEZINK [Concomitant]
     Indication: Product used for unknown indication
     Dates: start: 20180717
  4. HYDROXOCOBALAMIN ALTERNOVA [Concomitant]
     Indication: Product used for unknown indication
     Dates: start: 20180717
  5. XYLOCAINE [Concomitant]
     Active Substance: LIDOCAINE HYDROCHLORIDE
     Indication: Product used for unknown indication
     Dates: start: 20221026, end: 20221029
  6. AMLODIPINE [Concomitant]
     Active Substance: AMLODIPINE BESYLATE
     Indication: Product used for unknown indication
     Dates: start: 20200226
  7. IOMERON [Concomitant]
     Active Substance: IOMEPROL
     Indication: Product used for unknown indication
     Dosage: 1-700VBI3D
     Dates: start: 20221026, end: 20221029
  8. CANDESARTAN [Concomitant]
     Active Substance: CANDESARTAN
     Indication: Product used for unknown indication
     Dosage: 1X1TV
     Dates: start: 20180717

REACTIONS (3)
  - Myocarditis [Not Recovered/Not Resolved]
  - Cardiac arrest [Not Recovered/Not Resolved]
  - Atrioventricular block complete [Not Recovered/Not Resolved]

NARRATIVE: CASE EVENT DATE: 20221027
